FAERS Safety Report 22669017 (Version 3)
Quarter: 2025Q2

REPORT INFORMATION
  Report Type: Report from Study
  Country: BR (occurrence: BR)
  Receive Date: 20230704
  Receipt Date: 20250529
  Transmission Date: 20250717
  Serious: No
  Sender: TAKEDA
  Company Number: BR-TAKEDA-2023TUS003569

PATIENT
  Age: 41 Year
  Sex: Female

DRUGS (2)
  1. VEDOLIZUMAB [Suspect]
     Active Substance: VEDOLIZUMAB
     Indication: Colitis ulcerative
  2. VEDOLIZUMAB [Suspect]
     Active Substance: VEDOLIZUMAB

REACTIONS (7)
  - Product preparation issue [Unknown]
  - Rash macular [Unknown]
  - Product dose omission issue [Unknown]
  - Product availability issue [Unknown]
  - Vision blurred [Unknown]
  - Arthralgia [Unknown]
  - Abdominal pain [Recovered/Resolved]

NARRATIVE: CASE EVENT DATE: 20230105
